FAERS Safety Report 9483555 (Version 1)
Quarter: 2013Q3

REPORT INFORMATION
  Report Type: Spontaneous
  Country: CA (occurrence: CA)
  Receive Date: 20130828
  Receipt Date: 20130828
  Transmission Date: 20140515
  Serious: Yes (Hospitalization)
  Sender: FDA-Public Use
  Company Number: CA-AMGEN-KDL285982

PATIENT
  Age: 44 Year
  Sex: Female

DRUGS (7)
  1. ENBREL [Suspect]
     Indication: RHEUMATOID ARTHRITIS
     Dosage: UNK UNK, QWK
     Route: 058
     Dates: start: 20070517, end: 20080514
  2. IRON [Concomitant]
     Dosage: UNK UNK, UNK
  3. POTASSIUM [Concomitant]
     Dosage: UNK UNK, UNK
  4. CALCIUM [Concomitant]
     Dosage: UNK UNK, UNK
  5. ERGOCALCIFEROL [Concomitant]
     Dosage: UNK UNK, UNK
  6. OMEPRAZOLE [Concomitant]
     Dosage: UNK UNK, UNK
  7. PREDNISONE [Concomitant]
     Dosage: UNK UNK, UNK

REACTIONS (4)
  - Arthritis bacterial [Recovering/Resolving]
  - Pancreatitis [Recovering/Resolving]
  - Cholecystitis [Recovering/Resolving]
  - Sick sinus syndrome [Recovering/Resolving]
